FAERS Safety Report 14669693 (Version 2)
Quarter: 2019Q3

REPORT INFORMATION
  Report Type: Spontaneous
  Country: US (occurrence: US)
  Receive Date: 20180322
  Receipt Date: 20190723
  Transmission Date: 20191004
  Serious: Yes (Death, Other)
  Sender: FDA-Public Use
  Company Number: US-GLAXOSMITHKLINE-US2018GSK048585

PATIENT
  Sex: Male

DRUGS (1)
  1. PREVACID [Suspect]
     Active Substance: LANSOPRAZOLE
     Indication: GASTROOESOPHAGEAL REFLUX DISEASE
     Dosage: 15 MG, QD
     Route: 065

REACTIONS (15)
  - Death [Fatal]
  - Renal injury [Unknown]
  - Nephropathy [Unknown]
  - Chronic kidney disease [Unknown]
  - Acute kidney injury [Unknown]
  - End stage renal disease [Unknown]
  - Renal impairment [Unknown]
  - Azotaemia [Unknown]
  - Dialysis [Unknown]
  - Nephrogenic anaemia [Unknown]
  - Renal cyst [Unknown]
  - Proteinuria [Unknown]
  - Renal disorder [Unknown]
  - Renal atrophy [Unknown]
  - Nephrosclerosis [Unknown]
